FAERS Safety Report 23431347 (Version 1)
Quarter: 2024Q1

REPORT INFORMATION
  Report Type: Spontaneous
  Country: US (occurrence: US)
  Receive Date: 20240123
  Receipt Date: 20240123
  Transmission Date: 20240409
  Serious: No
  Sender: FDA-Public Use
  Company Number: US-ALCON LABORATORIES-ALC2023US005456

PATIENT

DRUGS (3)
  1. BETADINE [Suspect]
     Active Substance: POVIDONE-IODINE
     Indication: Product used for unknown indication
     Dosage: UNK
     Route: 047
  2. IBRANCE [Concomitant]
     Active Substance: PALBOCICLIB
     Indication: Product used for unknown indication
     Dosage: 75 MG BY MOUTH DAILY FOR 21 DAYS FOLLOWED BY 7 DAYS OFF. INDICATE NUMBER OF REFILLS: 11
     Route: 048
  3. IBRANCE [Concomitant]
     Active Substance: PALBOCICLIB
     Dosage: 75 MG BY MOUTH DAILY. 1 TABLET (75 MG) DAILY FOR 3 WEEKS ON, THEN 1 WEEK OFF
     Route: 048

REACTIONS (1)
  - Hypersensitivity [Unknown]
